FAERS Safety Report 24307784 (Version 1)
Quarter: 2024Q3

REPORT INFORMATION
  Report Type: Spontaneous
  Country: US (occurrence: None)
  Receive Date: 20240911
  Receipt Date: 20240911
  Transmission Date: 20241017
  Serious: Yes (Other)
  Sender: Public
  Company Number: None

PATIENT
  Age: 63 Year
  Sex: Female
  Weight: 110.25 kg

DRUGS (2)
  1. OZEMPIC [Suspect]
     Active Substance: SEMAGLUTIDE
     Indication: Diabetes mellitus
     Dosage: OTHER FREQUENCY : WEEKLY;?
     Route: 058
     Dates: start: 20230101, end: 20230630
  2. MOUNJARO [Suspect]
     Active Substance: TIRZEPATIDE
     Indication: Diabetes mellitus
     Dosage: OTHER FREQUENCY : WEEKLY INJECTION;?
     Route: 058
     Dates: start: 20230701, end: 20240330

REACTIONS (9)
  - Tooth fracture [None]
  - Gingival disorder [None]
  - Dry mouth [None]
  - Dental caries [None]
  - Dehydration [None]
  - Dry eye [None]
  - Dry mouth [None]
  - Gingival atrophy [None]
  - Tooth loss [None]

NARRATIVE: CASE EVENT DATE: 20240301
